FAERS Safety Report 11969283 (Version 1)
Quarter: 2016Q1

REPORT INFORMATION
  Report Type: Spontaneous
  Country: US (occurrence: None)
  Receive Date: 20160127
  Receipt Date: 20160127
  Transmission Date: 20160526
  Serious: Yes (Other)
  Sender: FDA-Public Use
  Company Number: None

PATIENT
  Age: 23 Year
  Sex: Female
  Weight: 73.48 kg

DRUGS (4)
  1. PREDNISONE 20 MG ROXANE [Suspect]
     Active Substance: PREDNISONE
     Indication: HYPERSENSITIVITY
     Dosage: 20 MG (TAKE TWO) ONCE DAILY TAKEN BY MOUTH
     Route: 048
     Dates: start: 20160125, end: 20160125
  2. SYNTHROID [Concomitant]
     Active Substance: LEVOTHYROXINE SODIUM
  3. BROMELEIN [Concomitant]
  4. VELIVET (BIRTH CONTROL) [Concomitant]

REACTIONS (5)
  - Insomnia [None]
  - Migraine [None]
  - Palpitations [None]
  - Hyperhidrosis [None]
  - Vomiting [None]

NARRATIVE: CASE EVENT DATE: 20160125
